FAERS Safety Report 7577577-0 (Version None)
Quarter: 2011Q2

REPORT INFORMATION
  Report Type: 
  Country: None (occurrence: None)
  Receive Date: 20110621
  Receipt Date: 20110606
  Transmission Date: 20111010
  Serious: Yes (Hospitalization)
  Sender: FDA-Public Use
  Company Number: 2011MA007071

PATIENT
  Age: 53 Year
  Sex: Female

DRUGS (6)
  1. VALPROIC ACID [Suspect]
     Dosage: 660 MG;QD;PO
     Route: 048
  2. LORAZEPAM [Suspect]
     Dosage: 1 MG;QD;PO
     Route: 048
  3. CLOZARIL [Suspect]
     Dosage: 250 MG;QD;PO
     Route: 048
  4. LITHIUM CARBONATE [Concomitant]
  5. DIAZEPAM [Suspect]
     Dosage: 4 MG;PRN;PO
     Route: 048
  6. SULPIRIDE [Concomitant]

REACTIONS (1)
  - DYSPNOEA [None]
